FAERS Safety Report 7693869-9 (Version None)
Quarter: 2011Q3

REPORT INFORMATION
  Report Type: 
  Country: None (occurrence: None)
  Receive Date: 20110819
  Receipt Date: 20110810
  Transmission Date: 20111222
  Serious: Yes (Other)
  Sender: FDA-Public Use
  Company Number: NZ-AMGEN-NZLSP2011040202

PATIENT
  Age: 70 Year
  Sex: Male

DRUGS (6)
  1. CYCLOPHOSPHAMIDE [Concomitant]
  2. DOXORUBICIN HCL [Concomitant]
  3. NEULASTIM [Suspect]
     Indication: NEUTROPENIA
  4. PREDNISOLONE [Concomitant]
  5. MABTHERA [Suspect]
     Indication: DIFFUSE LARGE B-CELL LYMPHOMA
     Dosage: UNK UNK, 2 TIMES/WK
  6. VINCRISTINE [Concomitant]

REACTIONS (2)
  - DRUG INEFFECTIVE [None]
  - NEUTROPENIA [None]
